FAERS Safety Report 26148240 (Version 1)
Quarter: 2025Q4

REPORT INFORMATION
  Report Type: Spontaneous
  Country: US (occurrence: US)
  Receive Date: 20251212
  Receipt Date: 20251212
  Transmission Date: 20260118
  Serious: Yes (Other)
  Sender: TWI PHARMACEUTICALS
  Company Number: US-TWI PHARMACEUTICAL, INC-20251201554

PATIENT
  Age: 51 Year
  Sex: Male

DRUGS (3)
  1. TESTOSTERONE [Suspect]
     Active Substance: TESTOSTERONE
     Indication: Hypogonadism
     Dosage: UNK, BIW
     Route: 065
  2. PRASTERONE [Suspect]
     Active Substance: PRASTERONE
     Indication: Hypogonadism
     Dosage: UNK
     Route: 065
  3. PREGNENOLONE [Suspect]
     Active Substance: PREGNENOLONE
     Indication: Hypogonadism
     Dosage: UNK
     Route: 065

REACTIONS (1)
  - Aortic thrombosis [Unknown]
